FAERS Safety Report 12853280 (Version 1)
Quarter: 2016Q4

REPORT INFORMATION
  Report Type: Spontaneous
  Country: US (occurrence: US)
  Receive Date: 20161017
  Receipt Date: 20161017
  Transmission Date: 20170207
  Serious: No
  Sender: FDA-Public Use
  Company Number: US-JAZZ-2016-US-014337

PATIENT
  Sex: Female

DRUGS (40)
  1. NUEDEXTA [Concomitant]
     Active Substance: DEXTROMETHORPHAN HYDROBROMIDE\QUINIDINE SULFATE
  2. WELLBUTRIN XL [Concomitant]
     Active Substance: BUPROPION HYDROCHLORIDE
  3. VITAMIN D3 [Concomitant]
     Active Substance: CHOLECALCIFEROL
  4. IMITREX [Concomitant]
     Active Substance: SUMATRIPTAN SUCCINATE
  5. VERAPAMIL ER [Concomitant]
     Active Substance: VERAPAMIL HYDROCHLORIDE
  6. LEVSIN [Concomitant]
     Active Substance: HYOSCYAMINE SULFATE
  7. ROBAXIN-750 [Concomitant]
  8. COLACE [Concomitant]
     Active Substance: DOCUSATE SODIUM
  9. ZOFRAN [Concomitant]
     Active Substance: ONDANSETRON HYDROCHLORIDE
  10. CAFFEINE. [Concomitant]
     Active Substance: CAFFEINE
  11. PROMETHAZINE [Concomitant]
     Active Substance: PROMETHAZINE\PROMETHAZINE HYDROCHLORIDE
  12. DESOXYN [Concomitant]
     Active Substance: METHAMPHETAMINE HYDROCHLORIDE
  13. CALCIUM CARBONATE. [Concomitant]
     Active Substance: CALCIUM CARBONATE
  14. METHAMPHETAMINE [Concomitant]
     Active Substance: METHAMPHETAMINE
  15. BOTOX [Concomitant]
     Active Substance: ONABOTULINUMTOXINA
  16. MORPHINE SULFATE CR [Concomitant]
     Active Substance: MORPHINE SULFATE
  17. NEURONTIN [Concomitant]
     Active Substance: GABAPENTIN
  18. CARAFATE [Concomitant]
     Active Substance: SUCRALFATE
  19. FIORINAL [Concomitant]
     Active Substance: ASPIRIN\BUTALBITAL\CAFFEINE
  20. XYREM [Suspect]
     Active Substance: SODIUM OXYBATE
     Indication: NARCOLEPSY
     Dosage: 1.125 G, BID
     Route: 048
     Dates: start: 201307, end: 201307
  21. OXYCODONE AND ACETAMINOPHEN [Concomitant]
     Active Substance: ACETAMINOPHEN\OXYCODONE HYDROCHLORIDE
  22. PROZAC [Concomitant]
     Active Substance: FLUOXETINE HYDROCHLORIDE
  23. ALPRAZOLAM. [Concomitant]
     Active Substance: ALPRAZOLAM
  24. BUSPIRONE HCL [Concomitant]
     Active Substance: BUSPIRONE HYDROCHLORIDE
  25. TEGRETOL [Concomitant]
     Active Substance: CARBAMAZEPINE
  26. PRILOSEC [Concomitant]
     Active Substance: OMEPRAZOLE MAGNESIUM
  27. XYREM [Suspect]
     Active Substance: SODIUM OXYBATE
     Dosage: DOSE ADJUSTMENTS
     Route: 048
     Dates: start: 201307, end: 201308
  28. XYREM [Suspect]
     Active Substance: SODIUM OXYBATE
     Dosage: 4.5 G, BID
     Route: 048
     Dates: start: 201308
  29. MOTRIN IB [Concomitant]
     Active Substance: IBUPROFEN
  30. VERAPAMIL [Concomitant]
     Active Substance: VERAPAMIL HYDROCHLORIDE
  31. XYZAL [Concomitant]
     Active Substance: LEVOCETIRIZINE DIHYDROCHLORIDE
  32. ABILIFY [Concomitant]
     Active Substance: ARIPIPRAZOLE
  33. ARMOUR THYROID [Concomitant]
     Active Substance: THYROID, PORCINE
  34. VITAMIN B COMPLEX [Concomitant]
     Active Substance: CYANOCOBALAMIN\DEXPANTHENOL\NIACINAMIDE\PYRIDOXINE HYDROCHLORIDE\RIBOFLAVIN 5^-PHOSPHATE SODIUM\THIAMINE HYDROCHLORIDE\VITAMIN B COMPLEX
  35. PERCOCET [Concomitant]
     Active Substance: ACETAMINOPHEN\OXYCODONE HYDROCHLORIDE
  36. FLEXERIL [Concomitant]
     Active Substance: CYCLOBENZAPRINE HYDROCHLORIDE
  37. MAXALT [Concomitant]
     Active Substance: RIZATRIPTAN BENZOATE
  38. ANATABLOC [Concomitant]
     Active Substance: DIETARY SUPPLEMENT
  39. KLONOPIN [Concomitant]
     Active Substance: CLONAZEPAM
  40. ADDERALL [Concomitant]
     Active Substance: AMPHETAMINE ASPARTATE\AMPHETAMINE SULFATE\DEXTROAMPHETAMINE SACCHARATE\DEXTROAMPHETAMINE SULFATE

REACTIONS (1)
  - Unevaluable event [Not Recovered/Not Resolved]
